FAERS Safety Report 25765946 (Version 1)
Quarter: 2025Q3

REPORT INFORMATION
  Report Type: Spontaneous
  Country: EU (occurrence: EU)
  Receive Date: 20250905
  Receipt Date: 20250905
  Transmission Date: 20251020
  Serious: Yes (Other)
  Sender: ACCORD
  Company Number: None

PATIENT
  Age: 68 Year
  Sex: Male
  Weight: 82 kg

DRUGS (1)
  1. TADALAFIL [Suspect]
     Active Substance: TADALAFIL
     Indication: Prostate cancer
     Dosage: STRENGTH: 5 MG, 1 TABLET PER DAY
     Dates: start: 20220101, end: 20250728

REACTIONS (3)
  - Rhinitis ulcerative [Not Recovered/Not Resolved]
  - Nasal adhesions [Not Recovered/Not Resolved]
  - Anosmia [Not Recovered/Not Resolved]

NARRATIVE: CASE EVENT DATE: 20240101
